FAERS Safety Report 15593972 (Version 2)
Quarter: 2018Q4

REPORT INFORMATION
  Report Type: Spontaneous
  Country: US (occurrence: US)
  Receive Date: 20181106
  Receipt Date: 20181226
  Transmission Date: 20190205
  Serious: No
  Sender: FDA-Public Use
  Company Number: US-PFIZER INC-2018454186

PATIENT
  Age: 53 Year
  Sex: Female

DRUGS (1)
  1. XELJANZ XR [Suspect]
     Active Substance: TOFACITINIB CITRATE
     Dosage: 11 MG, UNK

REACTIONS (6)
  - Pyrexia [Unknown]
  - Ear pain [Unknown]
  - Sinus disorder [Unknown]
  - Musculoskeletal stiffness [Unknown]
  - Pain [Unknown]
  - Upper respiratory tract infection [Unknown]
